FAERS Safety Report 14284466 (Version 3)
Quarter: 2022Q1

REPORT INFORMATION
  Report Type: Report from Study
  Country: FR (occurrence: FR)
  Receive Date: 20171214
  Receipt Date: 20220130
  Transmission Date: 20220424
  Serious: Yes (Hospitalization, Other)
  Sender: FDA-Public Use
  Company Number: FR-JAZZ-2017-FR-016461

PATIENT

DRUGS (27)
  1. DEFITELIO [Suspect]
     Active Substance: DEFIBROTIDE SODIUM
     Indication: Prophylaxis
     Dosage: 25 MG/KG, QD
     Dates: start: 20140821
  2. DEFITELIO [Suspect]
     Active Substance: DEFIBROTIDE SODIUM
     Dosage: 1800 MG, QD
     Route: 042
     Dates: start: 20140827, end: 20140912
  3. CYCLOSPORINE [Suspect]
     Active Substance: CYCLOSPORINE
     Indication: Prophylaxis against graft versus host disease
     Dosage: 180 MG, QD
     Route: 042
     Dates: start: 20140825, end: 20141128
  4. HEPARIN [Concomitant]
     Active Substance: HEPARIN SODIUM
     Indication: Prophylaxis
     Dosage: 45000 IU, QD
     Route: 042
     Dates: start: 20140821, end: 20140910
  5. VANCOMYCIN [Concomitant]
     Active Substance: VANCOMYCIN
     Indication: Antibiotic therapy
     Dosage: 1300 MG, QD
     Route: 042
     Dates: start: 20140903, end: 20141007
  6. INEXIUM                            /01479302/ [Concomitant]
     Indication: Prophylaxis against gastrointestinal ulcer
     Dosage: 20 MG, QD
     Route: 048
     Dates: start: 20140425, end: 20141230
  7. ACYCLOVIR [Concomitant]
     Active Substance: ACYCLOVIR
     Indication: Antiviral prophylaxis
     Dosage: 1050 MG, QD
     Route: 042
     Dates: start: 20140825, end: 20140913
  8. CANCIDAS [Concomitant]
     Active Substance: CASPOFUNGIN ACETATE
     Indication: Antifungal prophylaxis
     Dosage: 50 MG, QD
     Dates: start: 20140908, end: 20140929
  9. MORPHINE [Concomitant]
     Active Substance: MORPHINE
     Indication: Analgesic therapy
     Dosage: 139 MG, QD
     Route: 042
     Dates: start: 20140908, end: 20141222
  10. ALDACTONE                          /00006201/ [Concomitant]
     Indication: Diuretic therapy
     Dosage: 50 MG, QD
     Route: 042
     Dates: start: 20140904, end: 20141219
  11. CELECTOL [Concomitant]
     Active Substance: CELIPROLOL HYDROCHLORIDE
     Indication: Hypotension
     Dosage: 400 MG, QD
     Route: 048
     Dates: start: 20140822, end: 20141127
  12. CILASTATIN SODIUM\IMIPENEM [Concomitant]
     Active Substance: CILASTATIN SODIUM\IMIPENEM
     Indication: Antibiotic therapy
     Dosage: 2700 MG, QD
     Route: 042
     Dates: start: 20140903, end: 20141015
  13. KEPPRA [Concomitant]
     Active Substance: LEVETIRACETAM
     Indication: Anticonvulsant drug level
     Dosage: 1.5 G, QD
     Dates: start: 20140311
  14. KEPPRA [Concomitant]
     Active Substance: LEVETIRACETAM
     Dosage: 2 G, QD
     Route: 048
     Dates: start: 20140317, end: 20141219
  15. FUROSEMIDE [Concomitant]
     Active Substance: FUROSEMIDE
     Indication: Diuretic therapy
     Dosage: 80 MG, QD
     Route: 042
     Dates: start: 20140901, end: 20140907
  16. FUROSEMIDE [Concomitant]
     Active Substance: FUROSEMIDE
     Dosage: 40 MG, QD
     Route: 042
     Dates: start: 20140907, end: 20141218
  17. DITROPAN [Concomitant]
     Active Substance: OXYBUTYNIN CHLORIDE
     Indication: Urinary incontinence
     Dosage: 30 MG, QD
     Route: 048
     Dates: start: 20140909, end: 20141007
  18. NOXAFIL [Concomitant]
     Active Substance: POSACONAZOLE
     Indication: Antifungal prophylaxis
     Dosage: 800 MG, QD
     Route: 048
     Dates: start: 20140930, end: 20150224
  19. AMOXICILLIN [Concomitant]
     Active Substance: AMOXICILLIN
     Indication: Antibiotic therapy
     Dosage: 2 G, QD
     Route: 048
     Dates: start: 20141212, end: 20150113
  20. VALACYCLOVIR HYDROCHLORIDE [Concomitant]
     Active Substance: VALACYCLOVIR HYDROCHLORIDE
     Indication: Antiviral prophylaxis
     Dosage: 1 G, QD
     Route: 048
     Dates: start: 20140926, end: 20150520
  21. COLIMYCIN                          /00013203/ [Concomitant]
     Indication: Antibiotic therapy
     Dosage: UNK IU, QD
     Route: 048
     Dates: start: 20141227, end: 20150117
  22. ALIZAPRIDE HYDROCHLORIDE [Concomitant]
     Active Substance: ALIZAPRIDE HYDROCHLORIDE
     Indication: Antiemetic supportive care
     Dosage: 150 MG, QD
     Route: 048
     Dates: start: 20140621, end: 20141203
  23. BACTRIM [Concomitant]
     Active Substance: SULFAMETHOXAZOLE\TRIMETHOPRIM
     Indication: Antibiotic therapy
     Dosage: 800 MG, TID
     Dates: start: 20141001, end: 201505
  24. FLAGYL                             /00012501/ [Concomitant]
     Dosage: 1 G, UNK
     Route: 048
     Dates: start: 20150103, end: 20150113
  25. ADALAT [Concomitant]
     Active Substance: NIFEDIPINE
     Indication: Hypotension
     Dosage: 40 MG, QD
     Route: 048
     Dates: start: 20140821, end: 20140913
  26. CIFLOX                             /00697201/ [Concomitant]
     Indication: Antibiotic therapy
     Dosage: 1 G, QD
     Route: 042
     Dates: start: 20141001, end: 20141118
  27. ZOPHREN                            /00955301/ [Concomitant]
     Indication: Antiemetic supportive care
     Dosage: 16 MG, QD
     Route: 048
     Dates: start: 20140915, end: 20141230

REACTIONS (9)
  - Renal failure [Recovered/Resolved]
  - Cystitis haemorrhagic [Recovered/Resolved]
  - Escherichia urinary tract infection [Recovered/Resolved]
  - Cardiac tamponade [Recovered/Resolved]
  - Respiratory distress [Recovered/Resolved]
  - Hypervolaemia [Recovered/Resolved]
  - Hypernatraemia [Recovered/Resolved]
  - Off label use [Unknown]
  - Off label use [Unknown]

NARRATIVE: CASE EVENT DATE: 20140910
